FAERS Safety Report 7743059-6 (Version None)
Quarter: 2011Q3

REPORT INFORMATION
  Report Type: 
  Country: None (occurrence: None)
  Receive Date: 20110901
  Receipt Date: 20110822
  Transmission Date: 20111222
  Serious: Yes (Hospitalization, Other)
  Sender: FDA-Public Use
  Company Number: 2011SP039770

PATIENT
  Sex: Female

DRUGS (2)
  1. PEG-INTRON [Suspect]
     Indication: HEPATITIS C
     Dosage: UNK;UNK
     Dates: start: 20110731, end: 20110806
  2. RIBAVIRIN [Suspect]
     Indication: HEPATITIS C
     Dosage: UNK;UNK
     Dates: start: 20110731, end: 20110806

REACTIONS (5)
  - NERVOUSNESS [None]
  - INSOMNIA [None]
  - EATING DISORDER [None]
  - CRYING [None]
  - ANXIETY [None]
